FAERS Safety Report 7958349-1 (Version None)
Quarter: 2011Q4

REPORT INFORMATION
  Report Type: 
  Country: None (occurrence: None)
  Receive Date: 20111205
  Receipt Date: 20111201
  Transmission Date: 20120403
  Serious: Yes (Hospitalization)
  Sender: FDA-Public Use
  Company Number: DE-ROCHE-693824

PATIENT
  Sex: Male
  Weight: 75 kg

DRUGS (5)
  1. DOCITON [Concomitant]
  2. MILK THISTLE [Concomitant]
     Dates: start: 20050101
  3. PANTOPRAZOLE SODIUM [Concomitant]
     Dates: start: 20100520
  4. BLINDED TENOFOVIR [Suspect]
     Indication: HEPATITIS VIRAL
     Dosage: DOSE BLINDED, FREQUENCY DAILY, LAST DOSE PIOR TO SAE: 23 FEBRUARY 2010
     Route: 048
     Dates: start: 20090901, end: 20100223
  5. PEGINTERFERON ALFA-2A [Suspect]
     Indication: HEPATITIS VIRAL
     Dosage: DOSE: 135 UNIT: 1, LAST DOSE PIOR TO SAE: 23 FEBRUARY 2010
     Route: 058
     Dates: start: 20090901, end: 20100223

REACTIONS (3)
  - GASTROINTESTINAL HAEMORRHAGE [None]
  - GASTRITIS [None]
  - ANAL ULCER [None]
